FAERS Safety Report 9549241 (Version 1)
Quarter: 2013Q3

REPORT INFORMATION
  Report Type: Spontaneous
  Country: US (occurrence: None)
  Receive Date: 20130923
  Receipt Date: 20130923
  Transmission Date: 20140515
  Serious: Yes (Life-Threatening, Hospitalization)
  Sender: FDA-Public Use
  Company Number: None

PATIENT
  Age: 16 Year
  Sex: Female
  Weight: 79.38 kg

DRUGS (1)
  1. LOESTRIN 24 FE [Suspect]
     Indication: POLYCYSTIC OVARIES
     Dosage: 1 PILL
     Route: 048
     Dates: start: 20110903, end: 20111025

REACTIONS (1)
  - Pulmonary embolism [None]
